FAERS Safety Report 21443032 (Version 2)
Quarter: 2022Q4

REPORT INFORMATION
  Report Type: Spontaneous
  Country: US (occurrence: US)
  Receive Date: 20221012
  Receipt Date: 20221013
  Transmission Date: 20230112
  Serious: No
  Sender: FDA-Public Use
  Company Number: US-NOVARTISTESTPH-NVSC2022US229448

PATIENT
  Sex: Female

DRUGS (2)
  1. COMBIPATCH [Suspect]
     Active Substance: ESTRADIOL\NORETHINDRONE ACETATE
     Indication: Product used for unknown indication
     Dosage: 0.05/0.25MG (1 PATCH, EVERY 3-4 DAYS)
     Route: 062
     Dates: start: 20221005
  2. COMBIPATCH [Suspect]
     Active Substance: ESTRADIOL\NORETHINDRONE ACETATE
     Dosage: 0.05/0.25MG (1 PATCH, EVERY 3-4 DAYS)
     Route: 062
     Dates: start: 20221005

REACTIONS (2)
  - Product storage error [Not Recovered/Not Resolved]
  - Product dispensing error [Not Recovered/Not Resolved]
